FAERS Safety Report 25051152 (Version 1)
Quarter: 2025Q1

REPORT INFORMATION
  Report Type: Spontaneous
  Country: US (occurrence: US)
  Receive Date: 20250307
  Receipt Date: 20250307
  Transmission Date: 20250409
  Serious: No
  Sender: SAMSUNG BIOEPIS
  Company Number: US-SAMSUNG BIOEPIS-SB-2024-29137

PATIENT
  Age: 37 Year
  Sex: Female

DRUGS (2)
  1. HADLIMA [Suspect]
     Active Substance: ADALIMUMAB-BWWD
     Indication: Product used for unknown indication
     Dosage: 40MG/0.4ML;
  2. HADLIMA [Suspect]
     Active Substance: ADALIMUMAB-BWWD
     Dosage: 40MG/0.4ML;

REACTIONS (2)
  - Illness [Unknown]
  - Product storage error [Unknown]

NARRATIVE: CASE EVENT DATE: 20240924
